FAERS Safety Report 7402558-7 (Version None)
Quarter: 2011Q2

REPORT INFORMATION
  Report Type: 
  Country: None (occurrence: None)
  Receive Date: 20110408
  Receipt Date: 20110330
  Transmission Date: 20111010
  Serious: Yes (Death)
  Sender: FDA-Public Use
  Company Number: IE-MEDIMMUNE-MEDI-0010057

PATIENT
  Sex: Male

DRUGS (4)
  1. SYNAGIS [Suspect]
     Route: 030
     Dates: start: 20091002, end: 20091130
  2. VALPROATE SODIUM [Concomitant]
  3. CAFFEINE CITRATE [Concomitant]
  4. HYOSCINE [Concomitant]

REACTIONS (1)
  - APNOEA [None]
